FAERS Safety Report 23882077 (Version 3)
Quarter: 2024Q3

REPORT INFORMATION
  Report Type: Spontaneous
  Country: JP (occurrence: JP)
  Receive Date: 20240521
  Receipt Date: 20240816
  Transmission Date: 20241016
  Serious: Yes (Hospitalization, Other)
  Sender: BRISTOL MYERS SQUIBB
  Company Number: JP-ONO-2024JP010373

PATIENT
  Age: 83 Year
  Sex: Female

DRUGS (1)
  1. OPDIVO [Suspect]
     Active Substance: NIVOLUMAB
     Indication: Oesophageal carcinoma
     Route: 041
     Dates: start: 20240311, end: 20240408

REACTIONS (3)
  - Pneumonia [Recovered/Resolved]
  - Neutropenia [Recovered/Resolved]
  - Neutropenic infection [Recovered/Resolved]

NARRATIVE: CASE EVENT DATE: 20240417
